FAERS Safety Report 21996934 (Version 2)
Quarter: 2023Q1

REPORT INFORMATION
  Report Type: Spontaneous
  Country: CN (occurrence: CN)
  Receive Date: 20230215
  Receipt Date: 20230227
  Transmission Date: 20230418
  Serious: Yes (Hospitalization, Other)
  Sender: FDA-Public Use
  Company Number: CN-Merck Healthcare KGaA-9382638

PATIENT
  Age: 80 Year
  Sex: Female

DRUGS (1)
  1. GLUCOPHAGE [Suspect]
     Active Substance: METFORMIN HYDROCHLORIDE
     Indication: Type 2 diabetes mellitus
     Route: 048
     Dates: start: 2000

REACTIONS (8)
  - Hypoglycaemia [Recovered/Resolved]
  - Fall [Recovered/Resolved]
  - Spinal compression fracture [Unknown]
  - Loss of consciousness [Recovered/Resolved]
  - Polyp [Recovered/Resolved]
  - Blood pressure increased [Unknown]
  - Glycosylated haemoglobin increased [Not Recovered/Not Resolved]
  - Hyperglycaemia [Unknown]

NARRATIVE: CASE EVENT DATE: 20230101
